FAERS Safety Report 6132969-1 (Version None)
Quarter: 2009Q1

REPORT INFORMATION
  Report Type: 
  Country: None (occurrence: None)
  Receive Date: 20090325
  Receipt Date: 20090325
  Transmission Date: 20090719
  Serious: Yes (Hospitalization)
  Sender: FDA-Public Use
  Company Number: None

PATIENT
  Sex: Female
  Weight: 72.1219 kg

DRUGS (6)
  1. ALIMTA [Suspect]
     Indication: HEAD AND NECK CANCER
     Dosage: 500 MG/M2 Q 3 WEEKS IV
     Route: 042
     Dates: start: 20090114, end: 20090225
  2. AVASTIN [Suspect]
     Indication: HEAD AND NECK CANCER
     Dosage: 15 MG/KG Q 3 WEEKS IV
     Route: 042
     Dates: start: 20090114, end: 20090225
  3. VIT B12 IM [Concomitant]
  4. FOLIC ACID [Concomitant]
  5. ATENOLOL [Concomitant]
  6. OXYCODONE HCL [Concomitant]

REACTIONS (2)
  - HYPERTENSION [None]
  - SYNCOPE [None]
